FAERS Safety Report 7496602-9 (Version None)
Quarter: 2011Q2

REPORT INFORMATION
  Report Type: 
  Country: None (occurrence: None)
  Receive Date: 20110523
  Receipt Date: 20110512
  Transmission Date: 20111010
  Serious: Yes (Other)
  Sender: FDA-Public Use
  Company Number: US-ASTRAZENECA-2011SE25878

PATIENT
  Age: 64 Year
  Sex: Male

DRUGS (2)
  1. ATACAND [Suspect]
     Route: 048
  2. CRESTOR [Suspect]
     Route: 048

REACTIONS (6)
  - HYPERCHOLESTEROLAEMIA [None]
  - VISUAL ACUITY REDUCED [None]
  - DRUG DOSE OMISSION [None]
  - MYOCARDIAL INFARCTION [None]
  - CARDIAC DISORDER [None]
  - HYPERTENSION [None]
